FAERS Safety Report 5554906-0 (Version None)
Quarter: 2007Q4

REPORT INFORMATION
  Report Type: 
  Country: None (occurrence: None)
  Receive Date: 20071211
  Receipt Date: 20071128
  Transmission Date: 20080405
  Serious: Yes (Other)
  Sender: FDA-Public Use
  Company Number: 17979

PATIENT
  Age: 48 Year
  Sex: Female

DRUGS (2)
  1. VINORELBINE [Suspect]
     Indication: BREAST CANCER
     Dosage: 25 MG/M2 PER_CYCLE
  2. ONXOL [Suspect]
     Indication: BREAST CANCER
     Dosage: 175 MG/M2 PER_CYCLE

REACTIONS (9)
  - CRANIAL NEUROPATHY [None]
  - DRUG INTOLERANCE [None]
  - DYSPHAGIA [None]
  - DYSPHONIA [None]
  - HYPERAESTHESIA [None]
  - METASTASIS [None]
  - MUSCULOSKELETAL PAIN [None]
  - PARAESTHESIA [None]
  - VOCAL CORD PARALYSIS [None]
